FAERS Safety Report 18786565 (Version 1)
Quarter: 2021Q1

REPORT INFORMATION
  Report Type: Spontaneous
  Country: US (occurrence: US)
  Receive Date: 20210125
  Receipt Date: 20210125
  Transmission Date: 20210419
  Serious: No
  Sender: FDA-Public Use
  Company Number: None

PATIENT
  Age: 69 Year
  Sex: Female
  Weight: 62.1 kg

DRUGS (11)
  1. LISINOPRIL/HCTZ [Concomitant]
     Active Substance: HYDROCHLOROTHIAZIDE\LISINOPRIL
  2. ATORVASTATIN [Concomitant]
     Active Substance: ATORVASTATIN
  3. OMEGA 3 [Concomitant]
     Active Substance: OMEGA-3 FATTY ACIDS
  4. ALENDRONATE [Concomitant]
     Active Substance: ALENDRONATE SODIUM
  5. AREDS 2 [Concomitant]
     Active Substance: MINERALS\VITAMINS
  6. PROBIOTICS [Concomitant]
     Active Substance: PROBIOTICS NOS
  7. TIMOLOL MALEATE 0.5% EYE DROPS [Suspect]
     Active Substance: TIMOLOL MALEATE
     Indication: GLAUCOMA
     Dosage: ?          QUANTITY:1 DROP(S);?
     Route: 047
     Dates: start: 20210118, end: 20210120
  8. LATANOPROST. [Concomitant]
     Active Substance: LATANOPROST
  9. ASPIRIN. [Concomitant]
     Active Substance: ASPIRIN
  10. MULTIVITAMIN [Concomitant]
     Active Substance: VITAMINS
  11. D3+K2 [Concomitant]

REACTIONS (4)
  - Foreign body sensation in eyes [None]
  - Eyelid margin crusting [None]
  - Swelling of eyelid [None]
  - Eye pruritus [None]

NARRATIVE: CASE EVENT DATE: 20210118
